FAERS Safety Report 22398764 (Version 1)
Quarter: 2023Q2

REPORT INFORMATION
  Report Type: Report from Study
  Country: US (occurrence: None)
  Receive Date: 20230602
  Receipt Date: 20230602
  Transmission Date: 20230721
  Serious: Yes (Other)
  Sender: FDA-Public Use
  Company Number: 2023A122749

PATIENT
  Sex: Female
  Weight: 57.2 kg

DRUGS (1)
  1. LYNPARZA [Suspect]
     Active Substance: OLAPARIB
     Indication: Adenocarcinoma of the cervix
     Route: 048
     Dates: start: 20230504

REACTIONS (4)
  - Dementia [Unknown]
  - Anxiety [Unknown]
  - Memory impairment [Unknown]
  - Off label use [Unknown]
